FAERS Safety Report 7118809-2 (Version None)
Quarter: 2010Q4

REPORT INFORMATION
  Report Type: 
  Country: None (occurrence: None)
  Receive Date: 20101123
  Receipt Date: 20100901
  Transmission Date: 20110411
  Serious: No
  Sender: FDA-Public Use
  Company Number: US-KINGPHARMUSA00001-K201001121

PATIENT
  Age: 80 Year
  Sex: Female
  Weight: 69.388 kg

DRUGS (5)
  1. FLECTOR [Suspect]
     Indication: ARTHRALGIA
     Dosage: 2 PATCHES, SINGLE
     Route: 061
     Dates: start: 20100801, end: 20100801
  2. FLECTOR [Suspect]
     Indication: PAIN IN EXTREMITY
  3. SYNTHROID [Concomitant]
     Indication: HYPOTHYROIDISM
     Dosage: UNK, QD
     Route: 048
  4. LORCET-HD [Concomitant]
     Indication: PAIN
     Dosage: UNK, PRN
     Route: 048
  5. LASIX [Concomitant]
     Indication: FLUID RETENTION
     Dosage: UNK
     Route: 048

REACTIONS (2)
  - APPLICATION SITE BLEEDING [None]
  - APPLICATION SITE PAIN [None]
